FAERS Safety Report 8102406-6 (Version None)
Quarter: 2012Q1

REPORT INFORMATION
  Report Type: 
  Country: None (occurrence: None)
  Receive Date: 20120131
  Receipt Date: 20120131
  Transmission Date: 20120608
  Serious: No
  Sender: FDA-Public Use
  Company Number: None

PATIENT
  Sex: Female

DRUGS (1)
  1. ENBREL [Suspect]
     Indication: PSORIATIC ARTHROPATHY
     Dosage: 50MG QW SQ`
     Route: 058
     Dates: start: 20111230, end: 20120113

REACTIONS (2)
  - OEDEMA PERIPHERAL [None]
  - CONTUSION [None]
